FAERS Safety Report 5468121-2 (Version None)
Quarter: 2007Q3

REPORT INFORMATION
  Report Type: 
  Country: None (occurrence: None)
  Receive Date: 20070926
  Receipt Date: 20070917
  Transmission Date: 20080115
  Serious: Yes (Other)
  Sender: FDA-Public Use
  Company Number: BR-JNJFOC-20070903723

PATIENT
  Age: 7 Year
  Sex: Female
  Weight: 20 kg

DRUGS (2)
  1. HALDOL [Suspect]
     Indication: ACCIDENTAL EXPOSURE
     Route: 048
  2. LITHIUM CARBONATE [Suspect]
     Indication: ACCIDENTAL EXPOSURE
     Route: 048

REACTIONS (6)
  - ACCIDENTAL EXPOSURE [None]
  - DYSTONIA [None]
  - MUTISM [None]
  - STARING [None]
  - TACHYCARDIA [None]
  - TREMOR [None]
